FAERS Safety Report 9076927 (Version 1)
Quarter: 2013Q1

REPORT INFORMATION
  Report Type: Spontaneous
  Country: AU (occurrence: AU)
  Receive Date: 20130130
  Receipt Date: 20130130
  Transmission Date: 20140127
  Serious: Yes (Hospitalization)
  Sender: FDA-Public Use
  Company Number: AU-SANOFI-AVENTIS-2013SA005296

PATIENT
  Age: 77 Year
  Sex: Female

DRUGS (2)
  1. PLAVIX [Suspect]
     Indication: PRODUCT USED FOR UNKNOWN INDICATION
     Dates: start: 201209
  2. HYDROCHLOROTHIAZIDE [Concomitant]
     Dosage: TAKEN FOR YEARS
     Dates: end: 2012

REACTIONS (2)
  - Fall [Unknown]
  - Hyponatraemia [Unknown]
